FAERS Safety Report 8834015 (Version 1)
Quarter: 2012Q4

REPORT INFORMATION
  Report Type: Spontaneous
  Country: US (occurrence: None)
  Receive Date: 20121010
  Receipt Date: 20121010
  Transmission Date: 20130627
  Serious: Yes (Other)
  Sender: FDA-Public Use
  Company Number: None

PATIENT
  Age: 19 Year
  Sex: Male
  Weight: 86.18 kg

DRUGS (3)
  1. ZYPREXA [Suspect]
     Indication: SCHIZOPHRENIA
     Route: 048
     Dates: start: 20121002, end: 20121007
  2. TRAZADONE [Concomitant]
  3. PROZAC [Concomitant]

REACTIONS (6)
  - Sedation [None]
  - Mood altered [None]
  - Product substitution issue [None]
  - Decreased appetite [None]
  - Hallucination [None]
  - Muscle spasms [None]
